FAERS Safety Report 19194631 (Version 1)
Quarter: 2021Q2

REPORT INFORMATION
  Report Type: Spontaneous
  Country: US (occurrence: US)
  Receive Date: 20210429
  Receipt Date: 20210429
  Transmission Date: 20210717
  Serious: Yes (Other)
  Sender: FDA-Public Use
  Company Number: US-SAOL THERAPEUTICS-2021SAO00151

PATIENT
  Age: 33 Year
  Sex: Male

DRUGS (1)
  1. LIORESAL [Suspect]
     Active Substance: BACLOFEN
     Dosage: 403 ?G, \DAY
     Route: 037

REACTIONS (2)
  - Implant site inflammation [Unknown]
  - Implant site vesicles [Unknown]

NARRATIVE: CASE EVENT DATE: 20210413
